FAERS Safety Report 7464494-X (Version None)
Quarter: 2011Q2

REPORT INFORMATION
  Report Type: 
  Country: None (occurrence: None)
  Receive Date: 20110428
  Receipt Date: 20110425
  Transmission Date: 20111010
  Serious: Yes (Other)
  Sender: FDA-Public Use
  Company Number: 201110150

PATIENT
  Age: 13 Year
  Sex: Male

DRUGS (1)
  1. LIORESAL [Suspect]
     Indication: MUSCLE SPASTICITY
     Dosage: 160.2 MCG, DAILY, INTRATHECAL
     Route: 037

REACTIONS (6)
  - STAPHYLOCOCCUS TEST POSITIVE [None]
  - HEADACHE [None]
  - IMPLANT SITE INFECTION [None]
  - VOMITING [None]
  - INTRACRANIAL HYPOTENSION [None]
  - STREPTOCOCCUS TEST POSITIVE [None]
